FAERS Safety Report 18703177 (Version 3)
Quarter: 2021Q1

REPORT INFORMATION
  Report Type: Report from Study
  Country: US (occurrence: US)
  Receive Date: 20210105
  Receipt Date: 20210211
  Transmission Date: 20210419
  Serious: Yes (Hospitalization)
  Sender: FDA-Public Use
  Company Number: US-JNJFOC-20201247164

PATIENT
  Age: 66 Year
  Sex: Female

DRUGS (3)
  1. REMODULIN [Concomitant]
     Active Substance: TREPROSTINIL
  2. MACITENTAN [Suspect]
     Active Substance: MACITENTAN
     Indication: PULMONARY ARTERIAL HYPERTENSION
     Route: 048
     Dates: start: 20180718
  3. ADEMPAS [Suspect]
     Active Substance: RIOCIGUAT
     Dates: end: 202012

REACTIONS (5)
  - Septic shock [Unknown]
  - Respiratory failure [Unknown]
  - Dyspnoea [Unknown]
  - Ischaemic stroke [Unknown]
  - Encephalopathy [Unknown]

NARRATIVE: CASE EVENT DATE: 202012
